FAERS Safety Report 6212057-6 (Version None)
Quarter: 2009Q2

REPORT INFORMATION
  Report Type: 
  Country: None (occurrence: None)
  Receive Date: 20090602
  Receipt Date: 20090528
  Transmission Date: 20091009
  Serious: Yes (Other)
  Sender: FDA-Public Use
  Company Number: EC-PFIZER INC-2007047268

PATIENT
  Age: 50 Year

DRUGS (4)
  1. LYRICA [Suspect]
     Indication: LUMBAR HERNIA
     Route: 048
  2. CELECOXIB [Suspect]
     Indication: LUMBAR HERNIA
     Route: 048
  3. ACETAMINOPHEN [Suspect]
     Indication: LUMBAR HERNIA
  4. ANALGAN [Concomitant]

REACTIONS (2)
  - OEDEMA MOUTH [None]
  - RASH [None]
